FAERS Safety Report 8977663 (Version 2)
Quarter: 2013Q1

REPORT INFORMATION
  Report Type: Spontaneous
  Country: CN (occurrence: CN)
  Receive Date: 20121220
  Receipt Date: 20130109
  Transmission Date: 20140127
  Serious: Yes (Other)
  Sender: FDA-Public Use
  Company Number: CN-GLAXOSMITHKLINE-B0854088A

PATIENT
  Age: 66 Year
  Sex: Male

DRUGS (2)
  1. CEFUROXIME SODIUM [Suspect]
     Indication: BRONCHITIS CHRONIC
     Dosage: 4.5G PER DAY
     Route: 042
  2. SODIUM CHLORIDE [Concomitant]
     Route: 065

REACTIONS (9)
  - Anaphylactic reaction [Recovered/Resolved]
  - Palpitations [Unknown]
  - Chest discomfort [Unknown]
  - Rash maculo-papular [Unknown]
  - Tremor [Unknown]
  - Asthenia [Unknown]
  - Dizziness [Unknown]
  - Urticaria [Unknown]
  - Type IV hypersensitivity reaction [Unknown]
